FAERS Safety Report 8926560 (Version 1)
Quarter: 2012Q4

REPORT INFORMATION
  Report Type: 
  Country: AR (occurrence: AR)
  Receive Date: 20121127
  Receipt Date: 20121127
  Transmission Date: 20130627
  Serious: Yes (Other)
  Sender: FDA-Public Use
  Company Number: PHHY2012AR108230

PATIENT
  Sex: Female

DRUGS (1)
  1. ONBREZ [Suspect]
     Indication: BRONCHOSPASM
     Dates: start: 201211

REACTIONS (2)
  - Fibula fracture [Recovering/Resolving]
  - Fall [Recovering/Resolving]
